FAERS Safety Report 4481998-2 (Version None)
Quarter: 2004Q4

REPORT INFORMATION
  Report Type: 
  Country: None (occurrence: None)
  Receive Date: 20041022
  Receipt Date: 20040602
  Transmission Date: 20050328
  Serious: Yes (Death)
  Sender: FDA-Public Use
  Company Number: PHFR2004GB02282

PATIENT
  Age: 45 Year
  Sex: Male

DRUGS (5)
  1. CLOZARIL [Suspect]
     Indication: SCHIZOPHRENIA
     Dosage: 150MG/DAY
     Route: 048
     Dates: start: 20040511
  2. CLOZARIL [Suspect]
     Dosage: 250 MG/DAY
     Route: 048
  3. CLOZARIL [Suspect]
     Dosage: 100 MG/DAY
     Route: 048
  4. FLUPENTIXOL DECANOATE [Concomitant]
     Dosage: 100 MG, BIW
     Route: 030
  5. RANITIDINE [Concomitant]

REACTIONS (11)
  - ARRHYTHMIA [None]
  - CIRCULATORY COLLAPSE [None]
  - DIARRHOEA [None]
  - FATIGUE [None]
  - GASTROENTERITIS VIRAL [None]
  - LUNG INFECTION [None]
  - MYOCARDITIS [None]
  - PRODUCTIVE COUGH [None]
  - SEDATION [None]
  - TACHYCARDIA [None]
  - VOMITING [None]
